FAERS Safety Report 22762525 (Version 3)
Quarter: 2024Q1

REPORT INFORMATION
  Report Type: Spontaneous
  Country: US (occurrence: US)
  Receive Date: 20230728
  Receipt Date: 20240105
  Transmission Date: 20240410
  Serious: No
  Sender: FDA-Public Use
  Company Number: US-PFIZER INC-PV202300130795

PATIENT
  Age: 87 Year
  Sex: Male

DRUGS (1)
  1. VYNDAMAX [Suspect]
     Active Substance: TAFAMIDIS
     Indication: Cardiac disorder
     Dosage: 61 MG, 1-9-DAY
     Dates: start: 202209

REACTIONS (5)
  - Tooth infection [Recovered/Resolved]
  - Feeding disorder [Unknown]
  - Blood glucose increased [Unknown]
  - Musculoskeletal discomfort [Unknown]
  - Arthritis [Unknown]
